FAERS Safety Report 8935057 (Version 1)
Quarter: 2012Q4

REPORT INFORMATION
  Report Type: 
  Country: JP (occurrence: JP)
  Receive Date: 20121129
  Receipt Date: 20121129
  Transmission Date: 20130627
  Serious: Yes (Hospitalization, Other)
  Sender: FDA-Public Use
  Company Number: JP-BAYER-2012-125077

PATIENT
  Age: 30 Year
  Sex: Female
  Weight: 47.17 kg

DRUGS (6)
  1. BETAFERON [Suspect]
     Indication: MULTIPLE SCLEROSIS
     Dosage: 8 miu, QOD
     Route: 058
  2. MUCOSTA [Concomitant]
     Dosage: Daily dose 300 mg
     Route: 048
  3. PREDONINE [Concomitant]
     Dosage: 10 mg, QD
     Route: 048
  4. SLOW-K [Concomitant]
     Dosage: Daily dose 1200 mg
     Route: 048
  5. ACTONEL [Concomitant]
     Dosage: 17.5 mg, OW
     Route: 048
  6. GASTER [Concomitant]
     Dosage: 20 mg, QD
     Route: 048

REACTIONS (9)
  - Staphylococcal infection [Not Recovered/Not Resolved]
  - Pyrexia [Not Recovered/Not Resolved]
  - Inflammation [Not Recovered/Not Resolved]
  - Feeling hot [Not Recovered/Not Resolved]
  - Cellulitis [Unknown]
  - Injection site ulcer [Not Recovered/Not Resolved]
  - Pain [Not Recovered/Not Resolved]
  - Necrosis [Not Recovered/Not Resolved]
  - Skin discolouration [Not Recovered/Not Resolved]
